FAERS Safety Report 19620749 (Version 1)
Quarter: 2021Q3

REPORT INFORMATION
  Report Type: Spontaneous
  Country: FR (occurrence: FR)
  Receive Date: 20210728
  Receipt Date: 20210728
  Transmission Date: 20211014
  Serious: Yes (Hospitalization, Other)
  Sender: FDA-Public Use
  Company Number: FR-UCBSA-2021035448

PATIENT
  Age: 47 Year
  Sex: Female

DRUGS (2)
  1. KEPPRA [Suspect]
     Active Substance: LEVETIRACETAM
     Indication: PRODUCT USED FOR UNKNOWN INDICATION
  2. CHLORMADINONE TEVA [Suspect]
     Active Substance: CHLORMADINONE ACETATE
     Indication: PRODUCT USED FOR UNKNOWN INDICATION
     Dates: start: 20180104

REACTIONS (13)
  - Diplopia [Unknown]
  - Meningioma [Recovered/Resolved]
  - Dilatation ventricular [Unknown]
  - Paraesthesia [Unknown]
  - Fatigue [Unknown]
  - Headache [Recovering/Resolving]
  - Hyposmia [Unknown]
  - Phlebitis [Recovered/Resolved]
  - Migraine [Unknown]
  - Disturbance in attention [Unknown]
  - Cognitive disorder [Not Recovered/Not Resolved]
  - Memory impairment [Not Recovered/Not Resolved]
  - Muscle disorder [Unknown]
